FAERS Safety Report 4340703-0 (Version None)
Quarter: 2004Q2

REPORT INFORMATION
  Report Type: 
  Country: None (occurrence: None)
  Receive Date: 20040413
  Receipt Date: 20040331
  Transmission Date: 20050107
  Serious: Yes (Hospitalization, Other)
  Sender: FDA-Public Use
  Company Number: US-SHR-03-018169

PATIENT
  Age: 45 Year
  Sex: Male

DRUGS (10)
  1. BETAPACE AF [Suspect]
     Dosage: ORAL
     Route: 048
  2. CLONAPIN (CLONAZEPAM) [Concomitant]
  3. LOPRESSOR [Concomitant]
  4. GABAPENTIN [Concomitant]
  5. ELAVIL [Concomitant]
  6. PAXIL [Concomitant]
  7. ALLOPURINOL [Concomitant]
  8. DIGOXIN [Concomitant]
  9. PREVACID [Concomitant]
  10. MORPHINE [Concomitant]

REACTIONS (3)
  - ATRIAL FIBRILLATION [None]
  - LIVER FUNCTION TEST ABNORMAL [None]
  - RENAL FAILURE [None]
